FAERS Safety Report 5079607-7 (Version None)
Quarter: 2006Q3

REPORT INFORMATION
  Report Type: 
  Country: None (occurrence: None)
  Receive Date: 20060814
  Receipt Date: 20060804
  Transmission Date: 20061208
  Serious: Yes (Disabling)
  Sender: FDA-Public Use
  Company Number: 2006UW15641

PATIENT
  Age: 50 Year
  Sex: Male

DRUGS (3)
  1. CRESTOR [Suspect]
     Route: 048
  2. ACE INHIBITOR [Concomitant]
  3. ASPIRIN [Concomitant]
     Route: 048

REACTIONS (4)
  - ABASIA [None]
  - MYOPATHY [None]
  - NEUROPATHY [None]
  - PAIN IN EXTREMITY [None]
